FAERS Safety Report 6809892-X (Version None)
Quarter: 2010Q2

REPORT INFORMATION
  Report Type: 
  Country: None (occurrence: None)
  Receive Date: 20100630
  Receipt Date: 20100623
  Transmission Date: 20101027
  Serious: Yes (Other)
  Sender: FDA-Public Use
  Company Number: US-MYLANLABS-2009S1018149

PATIENT
  Age: 45 Year
  Sex: Female
  Weight: 68.04 kg

DRUGS (29)
  1. PERFOROMIST [Suspect]
     Indication: ASTHMA
     Route: 055
     Dates: start: 20091015, end: 20091015
  2. PERFOROMIST [Suspect]
     Indication: CHRONIC OBSTRUCTIVE PULMONARY DISEASE
     Route: 055
     Dates: start: 20091015, end: 20091015
  3. PREDNISONE [Concomitant]
     Indication: HYPERSENSITIVITY
     Dosage: EMERGENCY MED
  4. PULMICORT [Concomitant]
     Indication: ASTHMA
     Route: 055
  5. DUONEB [Concomitant]
     Indication: ASTHMA
     Dosage: EMERGENCY MED, 3-4 TIMES DAILY AS NEEDED
     Route: 055
  6. SYNTHROID [Concomitant]
     Route: 048
  7. ASPIRIN [Concomitant]
     Route: 048
  8. CLONIDINE [Concomitant]
     Route: 048
  9. IBUPROFEN [Concomitant]
     Route: 048
  10. SYSTANE [Concomitant]
     Route: 048
  11. PATANOL [Concomitant]
     Dosage: 1-2 DROPS IN EACH EYE 2-3TIMES DAILY AS NEEDED
     Route: 047
  12. SKELAXIN [Concomitant]
     Dosage: 3-4 TIMES DAILY
     Route: 048
  13. SODIUM CHLORIDE [Concomitant]
     Route: 055
  14. ALBUTEROL [Concomitant]
     Route: 055
  15. MUCINEX [Concomitant]
     Dosage: 1-2 TABLETS EVERY 12 HOURS
     Route: 048
  16. ANTIPYRINE AND BENZOCAIN OTIC SO. /00999201/ [Concomitant]
     Dosage: 4 DROPS IN EARS 4 TIMES DAILY AS NEEDED
  17. MIDRIN [Concomitant]
     Indication: MIGRAINE
  18. VITAMIN C [Concomitant]
  19. PREPARATION H /00426001/ [Concomitant]
     Dosage: 4 TIMES DAILY OR AFTER EACH BM
     Route: 054
  20. TRIAMCINOLONE [Concomitant]
     Route: 061
  21. CLOTRIMAZOLE W/BETAMETHASONE DIPROPIONAT [Concomitant]
     Route: 061
  22. HALOBETASOL PROPIONATE [Concomitant]
     Route: 061
  23. EUCERIN [Concomitant]
     Route: 061
  24. MYOFLEX /00021203/ [Concomitant]
     Route: 061
  25. CAMPHOR W/MENTHOL [Concomitant]
     Dosage: UNKER'S
     Route: 061
  26. ICY HOT [Concomitant]
     Route: 061
  27. MULTIVITAMIN WITH MINERALS [Concomitant]
     Route: 048
  28. LOVAZA [Concomitant]
     Route: 048
  29. CALCIUM WITH VITAMIN D [Concomitant]
     Route: 048

REACTIONS (9)
  - ANAPHYLACTIC REACTION [None]
  - DYSTONIA [None]
  - FATIGUE [None]
  - HYPERSENSITIVITY [None]
  - MUSCULAR WEAKNESS [None]
  - NASAL OEDEMA [None]
  - PHARYNGEAL OEDEMA [None]
  - SOMNOLENCE [None]
  - TREMOR [None]
